FAERS Safety Report 6591035-1 (Version None)
Quarter: 2010Q1

REPORT INFORMATION
  Report Type: 
  Country: None (occurrence: None)
  Receive Date: 20100216
  Receipt Date: 20100112
  Transmission Date: 20100710
  Serious: No
  Sender: FDA-Public Use
  Company Number: 2010-00033

PATIENT
  Sex: Female

DRUGS (1)
  1. COLD REMEDY GEL SWABS [Suspect]
     Dosage: 'FOR YEARS^

REACTIONS (1)
  - ANOSMIA [None]
